FAERS Safety Report 4323191-X (Version None)
Quarter: 2004Q1

REPORT INFORMATION
  Report Type: 
  Country: None (occurrence: None)
  Receive Date: 20040322
  Receipt Date: 20040310
  Transmission Date: 20041129
  Serious: No
  Sender: FDA-Public Use
  Company Number: TAP2004Q00315

PATIENT
  Age: 9 Year
  Sex: Female
  Weight: 39 kg

DRUGS (1)
  1. LUPRON DEPOT [Suspect]
     Indication: PRECOCIOUS PUBERTY
     Dosage: 15 MG, 1 IN 28 D, INTRAMUSCULAR
     Route: 030

REACTIONS (3)
  - ASTHENIA [None]
  - AUTOIMMUNE THYROIDITIS [None]
  - WEIGHT INCREASED [None]
